FAERS Safety Report 9009192 (Version 13)
Quarter: 2019Q1

REPORT INFORMATION
  Report Type: Report from Study
  Country: BE (occurrence: BE)
  Receive Date: 20130111
  Receipt Date: 20190319
  Transmission Date: 20190418
  Serious: Yes (Hospitalization)
  Sender: FDA-Public Use
  Company Number: BE-ROCHE-1176245

PATIENT
  Age: 55 Year
  Sex: Female

DRUGS (57)
  1. TRASTUZUMAB. [Suspect]
     Active Substance: TRASTUZUMAB
     Dosage: DATE OF LAST DOSE PRIOR TO SAE: 24/DEC/2012
     Route: 042
     Dates: start: 20121023
  2. DEXAMETHASONE. [Concomitant]
     Active Substance: DEXAMETHASONE
     Indication: PREMEDICATION
     Route: 065
     Dates: start: 20121001
  3. CALCIUM CARBONATE. [Concomitant]
     Active Substance: CALCIUM CARBONATE
     Indication: PROPHYLAXIS
     Route: 065
     Dates: start: 20121230
  4. D-CURE [Concomitant]
     Active Substance: CHOLECALCIFEROL
     Indication: PROPHYLAXIS
     Dosage: TOTAL DAILY DOSE: 1 UNIT PER MONTH
     Route: 065
  5. ZOLPIDEM [Concomitant]
     Active Substance: ZOLPIDEM\ZOLPIDEM TARTRATE
     Indication: PROPHYLAXIS
  6. BEFACT FORTE [Concomitant]
     Route: 065
     Dates: start: 20130207
  7. IMODIUM [Concomitant]
     Active Substance: LOPERAMIDE HYDROCHLORIDE
     Indication: DIARRHOEA
     Route: 065
     Dates: start: 20121230, end: 20121230
  8. IMODIUM [Concomitant]
     Active Substance: LOPERAMIDE HYDROCHLORIDE
     Dosage: 1 TABLET PRN
     Route: 065
     Dates: start: 20130208, end: 20130208
  9. PERIO AID (UNK INGREDIENTS) [Concomitant]
     Dosage: 10 ML PRN
     Route: 065
     Dates: start: 20170121
  10. TAVANIC [Concomitant]
     Active Substance: LEVOFLOXACIN
     Route: 065
     Dates: start: 20130702
  11. KALIUMCHLORIDE [Concomitant]
     Indication: HYPOKALAEMIA
     Route: 065
     Dates: start: 20130206, end: 20130221
  12. DALACIN [Concomitant]
     Active Substance: CLINDAMYCIN
     Route: 065
     Dates: start: 20170115, end: 20170210
  13. PARACETAMOL [Concomitant]
     Active Substance: ACETAMINOPHEN
     Route: 065
     Dates: start: 20170129, end: 20170208
  14. CALCIUM CARBONATE. [Concomitant]
     Active Substance: CALCIUM CARBONATE
     Route: 065
     Dates: start: 20121230
  15. LYRICA [Concomitant]
     Active Substance: PREGABALIN
     Indication: NEURALGIA
     Route: 065
  16. INNOHEP [Concomitant]
     Active Substance: TINZAPARIN SODIUM
     Dosage: 14000 UNITS
     Route: 065
     Dates: start: 20121127
  17. SPIRIVA [Concomitant]
     Active Substance: TIOTROPIUM BROMIDE MONOHYDRATE
     Route: 065
     Dates: start: 20140417
  18. DUOVENT [Concomitant]
     Active Substance: FENOTEROL HYDROBROMIDE
     Dosage: 1PUFF
     Route: 065
     Dates: start: 20140106
  19. ONBREZ [Concomitant]
     Active Substance: INDACATEROL
     Route: 065
     Dates: start: 201410
  20. CONTRAMAL RETARD [Concomitant]
     Route: 065
     Dates: start: 20170115, end: 20170117
  21. ZYRTEC [Concomitant]
     Active Substance: CETIRIZINE HYDROCHLORIDE
     Indication: PREMEDICATION
     Route: 065
     Dates: start: 20121001
  22. ZITROMAX [Concomitant]
     Active Substance: AZITHROMYCIN
     Route: 065
     Dates: start: 20121230, end: 20130104
  23. LORATADINE. [Concomitant]
     Active Substance: LORATADINE
     Dosage: 1 TABLET AS REQUIRED
     Route: 065
     Dates: start: 20150106
  24. DUROGESIC [Concomitant]
     Active Substance: FENTANYL
     Dosage: 23 UGM/3D
     Route: 065
     Dates: start: 20170121
  25. ONDANSETRAN [Concomitant]
     Active Substance: ONDANSETRON HYDROCHLORIDE
     Dosage: 4 MG AS REQUIRED
     Route: 065
     Dates: start: 20170129, end: 20170130
  26. TARADYL [Concomitant]
     Active Substance: KETOROLAC\KETOROLAC TROMETHAMINE
     Dosage: 30 MG PRN
     Route: 065
     Dates: start: 20170129, end: 20170130
  27. PERTUZUMAB. [Suspect]
     Active Substance: PERTUZUMAB
     Dosage: DATE OF LAST DOSE PRIOR TO SAE: 24/DEC/2012
     Route: 042
     Dates: start: 20121023
  28. AMOXICILLINE [Concomitant]
     Active Substance: AMOXICILLIN
     Route: 065
     Dates: start: 20121209, end: 20121213
  29. DENOSUMAB [Concomitant]
     Active Substance: DENOSUMAB
     Indication: PROPHYLAXIS
     Route: 065
     Dates: start: 20120816
  30. VANCOCIN [Concomitant]
     Active Substance: VANCOMYCIN HYDROCHLORIDE
     Route: 065
     Dates: start: 20130207, end: 20130221
  31. STILNOCT [Concomitant]
     Active Substance: ZOLPIDEM TARTRATE
     Dosage: 1 TABLET
     Route: 065
     Dates: start: 20130207, end: 20130221
  32. INJECTAFER [Concomitant]
     Active Substance: FERRIC CARBOXYMALTOSE
     Route: 065
     Dates: start: 20180326, end: 20180326
  33. TRASTUZUMAB. [Suspect]
     Active Substance: TRASTUZUMAB
     Indication: HER-2 POSITIVE BREAST CANCER
     Route: 042
     Dates: start: 20121002, end: 20121002
  34. PACLITAXEL. [Suspect]
     Active Substance: PACLITAXEL
     Indication: HER-2 POSITIVE BREAST CANCER
     Dosage: DATE OF LAST DOSE PRIOR TO SAE: 24/DEC/2012
     Route: 042
     Dates: start: 20121002
  35. DEANXIT [Concomitant]
     Active Substance: FLUPENTIXOL DIHYDROCHLORIDE\MELITRACEN HYDROCHLORIDE
     Indication: NEURALGIA
     Route: 065
  36. LEVOCETIRIZINE [Concomitant]
     Active Substance: LEVOCETIRIZINE
     Indication: PROPHYLAXIS
     Dosage: 1 TABLET
     Route: 065
  37. AVELOX [Concomitant]
     Active Substance: MOXIFLOXACIN HYDROCHLORIDE
     Route: 065
     Dates: start: 20121214, end: 20121216
  38. ZITROMAX [Concomitant]
     Active Substance: AZITHROMYCIN
     Route: 065
     Dates: start: 20121230, end: 20130104
  39. CALCIUM CHLORIDE. [Concomitant]
     Active Substance: CALCIUM CHLORIDE
     Route: 065
     Dates: start: 20130206, end: 20130221
  40. PARACETAMOL [Concomitant]
     Active Substance: ACETAMINOPHEN
     Route: 065
     Dates: start: 20170115
  41. NASONEX [Concomitant]
     Active Substance: MOMETASONE FUROATE
     Dosage: 3 UNITS
     Route: 065
     Dates: start: 201602
  42. PANTOMED (BELGIUM) [Concomitant]
     Active Substance: PANTOPRAZOLE SODIUM
     Route: 065
     Dates: start: 20170126, end: 20170705
  43. PERTUZUMAB. [Suspect]
     Active Substance: PERTUZUMAB
     Indication: HER-2 POSITIVE BREAST CANCER
     Route: 042
     Dates: start: 20121002, end: 20121002
  44. PLASMALYTE [Concomitant]
     Active Substance: ELECTROLYTES NOS
     Route: 065
     Dates: start: 20170129, end: 20170130
  45. AVELOX [Concomitant]
     Active Substance: MOXIFLOXACIN HYDROCHLORIDE
     Route: 065
     Dates: start: 20130207, end: 20130207
  46. ACETYLCYSTEINE. [Concomitant]
     Active Substance: ACETYLCYSTEINE
     Route: 065
     Dates: start: 20140106
  47. GELOFUSINE (BELGIUM) [Concomitant]
     Dosage: 1 UNIT
     Route: 065
     Dates: start: 20130207, end: 20130207
  48. IBUPROFEN. [Concomitant]
     Active Substance: IBUPROFEN
     Route: 065
     Dates: start: 20170115, end: 20170126
  49. OXYNORM [Concomitant]
     Active Substance: OXYCODONE HYDROCHLORIDE
     Dosage: 1 TABLET
     Route: 065
     Dates: start: 20170120
  50. FLAGYL [Concomitant]
     Active Substance: METRONIDAZOLE\METRONIDAZOLE HYDROCHLORIDE
     Route: 065
     Dates: start: 20170121
  51. DAFALGAN [Concomitant]
     Active Substance: ACETAMINOPHEN
     Indication: PROPHYLAXIS
     Route: 065
  52. ZOLPIDEM [Concomitant]
     Active Substance: ZOLPIDEM\ZOLPIDEM TARTRATE
     Indication: SLEEP DISORDER
  53. LEVOCETIRIZINE [Concomitant]
     Active Substance: LEVOCETIRIZINE
     Indication: PRURITUS
  54. AVELOX [Concomitant]
     Active Substance: MOXIFLOXACIN HYDROCHLORIDE
     Route: 065
     Dates: start: 20121226, end: 20121230
  55. DENOSUMAB [Concomitant]
     Active Substance: DENOSUMAB
     Indication: METASTASES TO BONE
  56. ELOCOM [Concomitant]
     Active Substance: MOMETASONE FUROATE
     Dosage: 1 UNIT
     Route: 065
     Dates: start: 20131126
  57. FERROGRADUMET [Concomitant]
     Active Substance: FERROUS SULFATE
     Route: 065
     Dates: start: 20140401

REACTIONS (1)
  - Pneumonia [Recovered/Resolved]

NARRATIVE: CASE EVENT DATE: 20121226
